FAERS Safety Report 9333815 (Version 1)
Quarter: 2013Q2

REPORT INFORMATION
  Report Type: Spontaneous
  Country: US (occurrence: US)
  Receive Date: 20130606
  Receipt Date: 20130606
  Transmission Date: 20140414
  Serious: No
  Sender: FDA-Public Use
  Company Number: US-AMGEN-USASP2013009036

PATIENT
  Age: 84 Year
  Sex: Female

DRUGS (6)
  1. PROLIA [Suspect]
     Indication: OSTEOPOROSIS POSTMENOPAUSAL
     Dosage: UNK
  2. BENICAR [Concomitant]
  3. ZETIA [Concomitant]
  4. MULTIVITAMIN                       /02160401/ [Concomitant]
  5. CALCIUM [Concomitant]
  6. COUMADIN                           /00014802/ [Concomitant]
     Indication: THROMBOSIS
     Dosage: UNK

REACTIONS (1)
  - International normalised ratio increased [Unknown]
